FAERS Safety Report 6192437-8 (Version None)
Quarter: 2009Q2

REPORT INFORMATION
  Report Type: 
  Country: None (occurrence: None)
  Receive Date: 20090518
  Receipt Date: 20090514
  Transmission Date: 20091009
  Serious: Yes (Hospitalization)
  Sender: FDA-Public Use
  Company Number: US-ASTRAZENECA-2009UW12470

PATIENT
  Age: 68 Year
  Sex: Male

DRUGS (9)
  1. CRESTOR [Suspect]
     Indication: CARDIAC DISORDER
     Route: 048
     Dates: start: 20090401
  2. PLAVIX [Concomitant]
  3. MAG OXIDE [Concomitant]
  4. KLOR-CON [Concomitant]
  5. COREG [Concomitant]
  6. NITROGLYCERIN [Concomitant]
  7. DIGOXIN [Concomitant]
  8. WARFARIN SODIUM [Concomitant]
  9. FUROSEMIDE [Concomitant]

REACTIONS (1)
  - ATRIAL FIBRILLATION [None]
